FAERS Safety Report 20731104 (Version 1)
Quarter: 2022Q2

REPORT INFORMATION
  Report Type: Spontaneous
  Country: US (occurrence: None)
  Receive Date: 20220420
  Receipt Date: 20220420
  Transmission Date: 20220720
  Serious: No
  Sender: FDA-Public Use
  Company Number: None

PATIENT
  Age: 38 Year
  Sex: Female
  Weight: 57.6 kg

DRUGS (8)
  1. BOTOX [Suspect]
     Active Substance: ONABOTULINUMTOXINA
     Dates: start: 20220408
  2. ROBAXIN [Concomitant]
     Active Substance: METHOCARBAMOL
  3. NEXIUM [Concomitant]
     Active Substance: ESOMEPRAZOLE MAGNESIUM
  4. PEPCID [Concomitant]
     Active Substance: FAMOTIDINE
  5. CARAFATE [Concomitant]
     Active Substance: SUCRALFATE
  6. MOTEGRITY [Concomitant]
     Active Substance: PRUCALOPRIDE SUCCINATE
  7. CLARITIN [Concomitant]
     Active Substance: LORATADINE
  8. Junel birth control [Concomitant]

REACTIONS (2)
  - Dry eye [None]
  - Headache [None]

NARRATIVE: CASE EVENT DATE: 20220408
